FAERS Safety Report 4515034-6 (Version None)
Quarter: 2004Q4

REPORT INFORMATION
  Report Type: 
  Country: None (occurrence: None)
  Receive Date: 20041129
  Receipt Date: 20041129
  Transmission Date: 20050328
  Serious: Yes (Disabling)
  Sender: FDA-Public Use
  Company Number: None

PATIENT
  Sex: Female
  Weight: 65.7716 kg

DRUGS (3)
  1. PROTONIX [Suspect]
     Indication: GASTROOESOPHAGEAL REFLUX DISEASE
     Dosage: 2 TABLET DAY ORAL
     Route: 048
     Dates: start: 20011102, end: 20020505
  2. NEXIUM [Suspect]
     Indication: GASTROOESOPHAGEAL REFLUX DISEASE
     Dosage: 2 CAPSULE  DAY ORAL
     Route: 048
     Dates: start: 20020505, end: 20041008
  3. NAPROXIN [Concomitant]

REACTIONS (1)
  - POLYMYALGIA RHEUMATICA [None]
